FAERS Safety Report 12458861 (Version 1)
Quarter: 2016Q2

REPORT INFORMATION
  Report Type: Spontaneous
  Country: US (occurrence: US)
  Receive Date: 20160613
  Receipt Date: 20160613
  Transmission Date: 20160815
  Serious: Yes (Hospitalization)
  Sender: FDA-Public Use
  Company Number: US-ASTRAZENECA-2016SE61507

PATIENT
  Sex: Female
  Weight: 55.3 kg

DRUGS (11)
  1. MINERALS [Concomitant]
     Active Substance: MINERALS
  2. VITAMINS [Concomitant]
     Active Substance: VITAMINS
  3. MULTIVITAMIN [Concomitant]
     Active Substance: VITAMINS
  4. SYMBICORT [Suspect]
     Active Substance: BUDESONIDE\FORMOTEROL FUMARATE DIHYDRATE
     Route: 055
  5. ATOROVASTATIN [Concomitant]
     Indication: VITAMIN SUPPLEMENTATION
  6. ASMACORT NEBULIZER [Concomitant]
     Indication: DYSPNOEA
  7. VITAMIN B12 [Concomitant]
     Active Substance: CYANOCOBALAMIN
     Indication: VITAMIN SUPPLEMENTATION
  8. SEVERAL INHALERS [Concomitant]
     Active Substance: UNSPECIFIED INGREDIENT
     Indication: DYSPNOEA
  9. SINGULAIR [Concomitant]
     Active Substance: MONTELUKAST SODIUM
     Indication: DYSPNOEA
  10. LOW DOSE ASPIRIN [Concomitant]
     Active Substance: ASPIRIN
  11. DALIRESP [Suspect]
     Active Substance: ROFLUMILAST
     Indication: CHRONIC OBSTRUCTIVE PULMONARY DISEASE
     Route: 055
     Dates: start: 20160530

REACTIONS (6)
  - Diarrhoea [Unknown]
  - Dyspnoea [Unknown]
  - Asthenia [Unknown]
  - Cardiac murmur [Unknown]
  - Fatigue [Unknown]
  - Myocardial infarction [Unknown]
